FAERS Safety Report 12923412 (Version 13)
Quarter: 2017Q3

REPORT INFORMATION
  Report Type: Spontaneous
  Country: US (occurrence: US)
  Receive Date: 20161109
  Receipt Date: 20170711
  Transmission Date: 20171127
  Serious: Yes (Hospitalization, Other)
  Sender: FDA-Public Use
  Company Number: US-PFIZER INC-2016512661

PATIENT
  Age: 65 Year
  Sex: Male

DRUGS (20)
  1. NYSTATIN. [Concomitant]
     Active Substance: NYSTATIN
     Dosage: UNK (SUS 100000)
  2. SYNTHROID [Concomitant]
     Active Substance: LEVOTHYROXINE SODIUM
     Dosage: 50 UG, UNK
  3. ALPRAZOLAM. [Concomitant]
     Active Substance: ALPRAZOLAM
     Dosage: 2 MG, UNK
  4. SUTENT [Suspect]
     Active Substance: SUNITINIB MALATE
     Indication: METASTASES TO BONE
     Dosage: 37.5 MG, CYCLIC (DAILY, 14 DAYS ON AND 7 DAYS OFF)
     Route: 048
     Dates: start: 201509, end: 201610
  5. SUTENT [Suspect]
     Active Substance: SUNITINIB MALATE
     Dosage: 37.5 MG, CYCLIC (DAILY, 14 DAYS ON AND 7 DAYS OFF)
     Route: 048
     Dates: start: 201509
  6. MORPHINE SULFATE. [Concomitant]
     Active Substance: MORPHINE SULFATE
     Dosage: 15 MG, UNK
  7. SYNTHROID [Concomitant]
     Active Substance: LEVOTHYROXINE SODIUM
     Dosage: 75 UG, UNK
  8. XGEVA [Concomitant]
     Active Substance: DENOSUMAB
     Dosage: UNK
  9. PHOSPHASAL [Concomitant]
     Active Substance: HYOSCYAMINE SULFATE\METHENAMINE\METHYLENE BLUE\PHENYL SALICYLATE\SODIUM PHOSPHATE, MONOBASIC, MONOHYDRATE
     Dosage: UNK
  10. AMLODIPINE [Concomitant]
     Active Substance: AMLODIPINE BESYLATE
     Dosage: 10 MG, UNK
  11. LISINOPRIL. [Concomitant]
     Active Substance: LISINOPRIL
     Dosage: 40 MG, UNK
  12. BENADRYL [Concomitant]
     Active Substance: DIPHENHYDRAMINE HYDROCHLORIDE
     Dosage: 25 MG, UNK
  13. MOTRIN IB [Concomitant]
     Active Substance: IBUPROFEN
     Dosage: 200 MG, UNK
  14. SUTENT [Suspect]
     Active Substance: SUNITINIB MALATE
     Dosage: 37.5 MG, CYCLIC (DAILY, 14 DAYS ON AND 7 DAYS OFF)
     Route: 048
  15. CALCIUM [Concomitant]
     Active Substance: CALCIUM
     Dosage: UNK
  16. OXYCODONE [Concomitant]
     Active Substance: OXYCODONE
     Dosage: 30 MG, UNK
  17. AQUAPHOR [Concomitant]
     Active Substance: PETROLATUM
     Dosage: UNK
  18. HYDRALAZINE [Concomitant]
     Active Substance: HYDRALAZINE HYDROCHLORIDE
     Dosage: 25 MG, UNK
  19. LOTEMAX [Concomitant]
     Active Substance: LOTEPREDNOL ETABONATE
     Dosage: 0.5 %, UNK
  20. CARVEDILOL. [Concomitant]
     Active Substance: CARVEDILOL
     Dosage: 12.5 MG, UNK

REACTIONS (31)
  - Eye swelling [Unknown]
  - Arthralgia [Not Recovered/Not Resolved]
  - Asthenia [Not Recovered/Not Resolved]
  - Bone erosion [Not Recovered/Not Resolved]
  - Dyspnoea [Not Recovered/Not Resolved]
  - Glossodynia [Not Recovered/Not Resolved]
  - Thyroid disorder [Not Recovered/Not Resolved]
  - Chest pain [Not Recovered/Not Resolved]
  - Blood creatinine increased [Not Recovered/Not Resolved]
  - Hypotension [Unknown]
  - Decreased appetite [Not Recovered/Not Resolved]
  - Eating disorder [Not Recovered/Not Resolved]
  - Musculoskeletal pain [Not Recovered/Not Resolved]
  - Weight decreased [Not Recovered/Not Resolved]
  - Blood pressure increased [Unknown]
  - Glossitis [Unknown]
  - Pain in extremity [Not Recovered/Not Resolved]
  - Diarrhoea [Not Recovered/Not Resolved]
  - Dysgeusia [Not Recovered/Not Resolved]
  - Loss of consciousness [Unknown]
  - Gingival pain [Not Recovered/Not Resolved]
  - Localised infection [Not Recovered/Not Resolved]
  - Neoplasm progression [Not Recovered/Not Resolved]
  - Nasopharyngitis [Unknown]
  - Haemoglobin abnormal [Unknown]
  - Noninfective gingivitis [Not Recovered/Not Resolved]
  - Musculoskeletal chest pain [Not Recovered/Not Resolved]
  - Jaw disorder [Not Recovered/Not Resolved]
  - Gingival disorder [Not Recovered/Not Resolved]
  - Oropharyngeal pain [Not Recovered/Not Resolved]
  - Fatigue [Not Recovered/Not Resolved]

NARRATIVE: CASE EVENT DATE: 201509
